FAERS Safety Report 11236505 (Version 1)
Quarter: 2015Q3

REPORT INFORMATION
  Report Type: Report from Study
  Country: BR (occurrence: BR)
  Receive Date: 20150702
  Receipt Date: 20150702
  Transmission Date: 20151125
  Serious: Yes (Other)
  Sender: FDA-Public Use
  Company Number: PHHY2015BR079233

PATIENT
  Age: 17 Year
  Sex: Female
  Weight: 45.85 kg

DRUGS (1)
  1. EXJADE [Suspect]
     Active Substance: DEFERASIROX
     Indication: PRODUCT USED FOR UNKNOWN INDICATION
     Dosage: 2 DF, (20MG/KG) QHS (AFTER MEAL)
     Route: 065

REACTIONS (1)
  - Sickle cell anaemia [Unknown]
